FAERS Safety Report 5497480-X (Version None)
Quarter: 2007Q4

REPORT INFORMATION
  Report Type: 
  Country: None (occurrence: None)
  Receive Date: 20071025
  Receipt Date: 20061121
  Transmission Date: 20080405
  Serious: No
  Sender: FDA-Public Use
  Company Number: A0628311A

PATIENT
  Age: 77 Year
  Sex: Male

DRUGS (8)
  1. ADVAIR DISKUS 100/50 [Suspect]
     Indication: DRUG USE FOR UNKNOWN INDICATION
     Route: 055
  2. SPIRIVA [Concomitant]
  3. HYDROCHLOROTHIAZIDE [Concomitant]
  4. TOPROL-XL [Concomitant]
  5. CLOPIDOGREL [Concomitant]
  6. RANITIDINE HCL [Concomitant]
  7. OMEPRAZID [Concomitant]
  8. LORAZEPAM [Concomitant]

REACTIONS (3)
  - ORAL PAIN [None]
  - PHARYNGEAL DISORDER [None]
  - SWOLLEN TONGUE [None]
